FAERS Safety Report 5478701-6 (Version None)
Quarter: 2007Q4

REPORT INFORMATION
  Report Type: 
  Country: None (occurrence: None)
  Receive Date: 20071005
  Receipt Date: 20070927
  Transmission Date: 20080405
  Serious: Yes (Death, Other)
  Sender: FDA-Public Use
  Company Number: FR-ABBOTT-07P-056-0417910-00

PATIENT
  Sex: Female

DRUGS (9)
  1. SEVORANE LIQUID FOR INHALATION [Suspect]
     Indication: ANAESTHESIA
     Route: 055
     Dates: start: 20070826, end: 20070826
  2. SUXAMETHONIUM [Suspect]
     Indication: ANAESTHESIA
     Route: 042
     Dates: start: 20070826, end: 20070826
  3. PROPOFOL [Suspect]
     Indication: ANAESTHESIA
     Route: 042
     Dates: start: 20070826, end: 20070826
  4. SUFENTANIL [Suspect]
     Indication: ANAESTHESIA
     Route: 042
     Dates: start: 20070826, end: 20070826
  5. SPIRONOLACTONE [Concomitant]
     Indication: HYPERTENSION
  6. FUROSEMIDE [Concomitant]
     Indication: HYPERTENSION
  7. FENOFIBRATE [Concomitant]
     Indication: HYPERCHOLESTEROLAEMIA
  8. ALENDRONATE MONOSODIUM [Concomitant]
     Indication: OSTEOPOROSIS
  9. CALCIUM CARBONATE [Concomitant]
     Indication: OSTEOPOROSIS

REACTIONS (5)
  - ANAPHYLACTOID SHOCK [None]
  - BREATH SOUNDS ABNORMAL [None]
  - BRONCHOSPASM [None]
  - CARBON DIOXIDE DECREASED [None]
  - PULSE ABSENT [None]
